FAERS Safety Report 12636457 (Version 6)
Quarter: 2016Q3

REPORT INFORMATION
  Report Type: Spontaneous
  Country: US (occurrence: US)
  Receive Date: 20160809
  Receipt Date: 20160826
  Transmission Date: 20161109
  Serious: Yes (Other)
  Sender: FDA-Public Use
  Company Number: US-RECKITT BENCKISER HEALTHCARE INT LIMITED-RB-88770-2016

PATIENT
  Sex: Female

DRUGS (2)
  1. DELSYM [Suspect]
     Active Substance: DEXTROMETHORPHAN
     Indication: COUGH
     Dosage: UNK
     Route: 065
     Dates: start: 20160712
  2. ADVIL (MEFENAMIC ACID) [Suspect]
     Active Substance: MEFENAMIC ACID
     Indication: PRODUCT USED FOR UNKNOWN INDICATION
     Dosage: UNK
     Route: 065
     Dates: start: 20160712

REACTIONS (19)
  - Delirium [Unknown]
  - Depression [Unknown]
  - Back disorder [Not Recovered/Not Resolved]
  - Impaired driving ability [Unknown]
  - Unevaluable event [Unknown]
  - Traumatic shock [Unknown]
  - Neck pain [Not Recovered/Not Resolved]
  - Back pain [Not Recovered/Not Resolved]
  - Panic attack [Unknown]
  - Insomnia [Unknown]
  - Pain in extremity [Not Recovered/Not Resolved]
  - Feeling abnormal [Unknown]
  - Anxiety [Unknown]
  - Cerebral disorder [Unknown]
  - Disturbance in social behaviour [Unknown]
  - Somnolence [Unknown]
  - Road traffic accident [Unknown]
  - Eating disorder [Unknown]
  - Visual acuity reduced [Unknown]

NARRATIVE: CASE EVENT DATE: 2016
